FAERS Safety Report 11698358 (Version 1)
Quarter: 2015Q4

REPORT INFORMATION
  Report Type: Spontaneous
  Country: US (occurrence: US)
  Receive Date: 20151104
  Receipt Date: 20151104
  Transmission Date: 20160304
  Serious: No
  Sender: FDA-Public Use
  Company Number: US-ELI_LILLY_AND_COMPANY-US201012005400

PATIENT
  Age: 59 Year
  Sex: Female

DRUGS (2)
  1. FORTEO [Suspect]
     Active Substance: TERIPARATIDE
     Dosage: 20 UG, QD
  2. FORTEO [Suspect]
     Active Substance: TERIPARATIDE
     Indication: OSTEOPOROSIS
     Dosage: 20 UG, DAILY (1/D)
     Dates: start: 201011

REACTIONS (9)
  - Hot flush [Unknown]
  - Injection site haemorrhage [Unknown]
  - Injection site mass [Unknown]
  - Feeling hot [Unknown]
  - Pain in extremity [Unknown]
  - Injection site bruising [Not Recovered/Not Resolved]
  - Nightmare [Unknown]
  - Hyperhidrosis [Unknown]
  - Intentional product misuse [Recovered/Resolved]

NARRATIVE: CASE EVENT DATE: 20101215
